FAERS Safety Report 21525526 (Version 1)
Quarter: 2022Q4

REPORT INFORMATION
  Report Type: Spontaneous
  Country: JP (occurrence: JP)
  Receive Date: 20221030
  Receipt Date: 20221030
  Transmission Date: 20230113
  Serious: Yes (Other)
  Sender: FDA-Public Use
  Company Number: JP-SA-2022SA431431

PATIENT
  Age: 64 Year
  Sex: Female

DRUGS (1)
  1. KEVZARA [Suspect]
     Active Substance: SARILUMAB
     Indication: Product used for unknown indication
     Route: 058

REACTIONS (5)
  - Cerebral infarction [Unknown]
  - Cardiac failure congestive [Unknown]
  - Ill-defined disorder [Unknown]
  - Condition aggravated [Unknown]
  - Bedridden [Unknown]
